FAERS Safety Report 21400446 (Version 1)
Quarter: 2022Q3

REPORT INFORMATION
  Report Type: Spontaneous
  Country: US (occurrence: None)
  Receive Date: 20220930
  Receipt Date: 20220930
  Transmission Date: 20221027
  Serious: Yes (Death)
  Sender: FDA-Public Use
  Company Number: None

PATIENT
  Age: 52 Year
  Sex: Male

DRUGS (6)
  1. BOTOX [Suspect]
     Active Substance: ONABOTULINUMTOXINA
  2. AMLODIPINE TAB [Concomitant]
  3. BACLOFEN [Concomitant]
     Active Substance: BACLOFEN
  4. DICLOFEN POT TAB [Concomitant]
  5. DULOTETINE CAP [Concomitant]
  6. HYDROCO.APAP [Concomitant]

REACTIONS (1)
  - Death [None]

NARRATIVE: CASE EVENT DATE: 20220920
